FAERS Safety Report 21596490 (Version 2)
Quarter: 2024Q4

REPORT INFORMATION
  Report Type: Spontaneous
  Country: US (occurrence: US)
  Receive Date: 20221115
  Receipt Date: 20241231
  Transmission Date: 20250114
  Serious: No
  Sender: PFIZER
  Company Number: US-PFIZER INC-PV202200086760

PATIENT
  Age: 63 Year
  Sex: Female

DRUGS (3)
  1. IBRANCE [Suspect]
     Active Substance: PALBOCICLIB
     Indication: Breast cancer female
     Dosage: 125 MG
  2. IBRANCE [Suspect]
     Active Substance: PALBOCICLIB
     Dosage: 100 MG
  3. IBRANCE [Suspect]
     Active Substance: PALBOCICLIB
     Dosage: 75 MG, DAILY (28-DAY SUPPLY)
     Route: 048

REACTIONS (4)
  - Movement disorder [Recovering/Resolving]
  - Dysstasia [Recovering/Resolving]
  - Full blood count abnormal [Recovering/Resolving]
  - Fatigue [Recovering/Resolving]
